FAERS Safety Report 8107060-5 (Version None)
Quarter: 2012Q1

REPORT INFORMATION
  Report Type: 
  Country: None (occurrence: None)
  Receive Date: 20120202
  Receipt Date: 20120130
  Transmission Date: 20120608
  Serious: Yes (Other)
  Sender: FDA-Public Use
  Company Number: US-PFIZER INC-2012026123

PATIENT
  Sex: Female
  Weight: 72.562 kg

DRUGS (5)
  1. SYNTHROID [Concomitant]
     Indication: THYROID DISORDER
     Dosage: 125 UG, DAILY
     Dates: start: 20010101
  2. VALIUM [Concomitant]
     Indication: SLEEP DISORDER
     Dosage: 10 MG, DAILY
  3. PREMPRO [Suspect]
     Dosage: 0.625/5MG,DAILY
  4. PREMARIN [Suspect]
     Dosage: 0.625 MG, DAILY
  5. LORTAB [Concomitant]
     Indication: ARTHROPATHY
     Dosage: 10/500 MG, DAILY

REACTIONS (1)
  - ARTHROPATHY [None]
